FAERS Safety Report 22141801 (Version 1)
Quarter: 2023Q1

REPORT INFORMATION
  Report Type: Spontaneous
  Country: US (occurrence: None)
  Receive Date: 20230325
  Receipt Date: 20230325
  Transmission Date: 20230418
  Serious: No
  Sender: FDA-Public Use
  Company Number: None

PATIENT
  Age: 41 Year
  Sex: Female
  Weight: 135 kg

DRUGS (1)
  1. HUMIRA [Suspect]
     Active Substance: ADALIMUMAB
     Indication: Psoriatic arthropathy
     Dosage: OTHER QUANTITY : 80 MG;?OTHER FREQUENCY : EVERY OTHER WEEK;?
     Route: 058
     Dates: start: 20230317, end: 20230317

REACTIONS (11)
  - Lymphadenopathy [None]
  - Ear infection [None]
  - Urticaria [None]
  - Rash [None]
  - Heart rate increased [None]
  - Paraesthesia [None]
  - Hypoaesthesia [None]
  - Arthralgia [None]
  - Peripheral swelling [None]
  - Joint swelling [None]
  - Pyrexia [None]

NARRATIVE: CASE EVENT DATE: 20230322
